FAERS Safety Report 8382812-5 (Version None)
Quarter: 2012Q2

REPORT INFORMATION
  Report Type: 
  Country: None (occurrence: None)
  Receive Date: 20120524
  Receipt Date: 20120511
  Transmission Date: 20120825
  Serious: Yes (Other)
  Sender: FDA-Public Use
  Company Number: CH-JNJFOC-20120511358

PATIENT
  Age: 42 Year
  Sex: Male

DRUGS (2)
  1. PALIPERIDONE [Suspect]
     Route: 030
  2. PALIPERIDONE [Suspect]
     Indication: PRODUCT USED FOR UNKNOWN INDICATION
     Route: 030

REACTIONS (1)
  - DEPRESSION [None]
